FAERS Safety Report 4752015-1 (Version None)
Quarter: 2005Q3

REPORT INFORMATION
  Report Type: 
  Country: None (occurrence: None)
  Receive Date: 20050822
  Receipt Date: 20050703
  Transmission Date: 20060218
  Serious: No
  Sender: FDA-Public Use
  Company Number: PHEH2005US07529

PATIENT
  Sex: Male

DRUGS (2)
  1. ZELNORM [Suspect]
     Indication: CONSTIPATION
     Dosage: ORAL
     Route: 048
  2. LAXATIVES (NO INGREDIENTS SUBSTANCES) [Concomitant]

REACTIONS (2)
  - DRUG INEFFECTIVE [None]
  - HYPERSOMNIA [None]
